FAERS Safety Report 17270632 (Version 1)
Quarter: 2020Q1

REPORT INFORMATION
  Report Type: Spontaneous
  Country: US (occurrence: US)
  Receive Date: 20200114
  Receipt Date: 20200114
  Transmission Date: 20200409
  Serious: Yes (Death)
  Sender: FDA-Public Use
  Company Number: US-FRESENIUS KABI-FK202000402

PATIENT
  Age: 69 Year
  Sex: Male

DRUGS (2)
  1. VANCOMYCIN (MANUFACTURER UNKNOWN) [Suspect]
     Active Substance: VANCOMYCIN
     Indication: STAPHYLOCOCCAL BACTERAEMIA
     Route: 065
  2. GENTAMICIN (MANUFACTURER UNKNOWN) [Suspect]
     Active Substance: GENTAMICIN
     Indication: STAPHYLOCOCCAL BACTERAEMIA
     Route: 065

REACTIONS (1)
  - Treatment failure [Fatal]
